FAERS Safety Report 5623670-9 (Version None)
Quarter: 2008Q1

REPORT INFORMATION
  Report Type: 
  Country: None (occurrence: None)
  Receive Date: 20080212
  Receipt Date: 20080130
  Transmission Date: 20080703
  Serious: Yes (Other)
  Sender: FDA-Public Use
  Company Number: US-ELI_LILLY_AND_COMPANY-US200801003528

PATIENT
  Sex: Female
  Weight: 102.49 kg

DRUGS (8)
  1. BYETTA [Suspect]
     Dosage: 5 UG, UNK
     Route: 058
     Dates: start: 20070709, end: 20070809
  2. BYETTA [Suspect]
     Dosage: 10 UG, 2/D
     Route: 058
     Dates: start: 20070809, end: 20080110
  3. GLUCOPHAGE [Concomitant]
     Dosage: 500 MG, EACH MORNING
     Dates: start: 20061003
  4. GLUCOPHAGE [Concomitant]
     Dosage: 1000 MG, EACH EVENING
     Dates: start: 20061003
  5. PRINIVIL [Concomitant]
     Indication: HYPERTENSION
     Dosage: 10 MG, UNKNOWN
     Route: 048
     Dates: start: 20070418
  6. LIPITOR [Concomitant]
     Indication: BLOOD CHOLESTEROL INCREASED
     Dosage: 20 MG, UNKNOWN
     Route: 048
     Dates: start: 20070418
  7. GLUCOTROL XL [Concomitant]
     Dosage: 2.5 MG, UNKNOWN
     Route: 048
     Dates: start: 20071214
  8. METFORMIN HCL [Concomitant]

REACTIONS (2)
  - PANCREATITIS [None]
  - WEIGHT DECREASED [None]
